FAERS Safety Report 9626336 (Version 1)
Quarter: 2013Q4

REPORT INFORMATION
  Report Type: Spontaneous
  Country: US (occurrence: None)
  Receive Date: 20131015
  Receipt Date: 20131015
  Transmission Date: 20140711
  Serious: No
  Sender: FDA-Public Use
  Company Number: None

PATIENT
  Age: 23 Year
  Sex: Female
  Weight: 97.52 kg

DRUGS (1)
  1. CYMBALTA 60MG [Suspect]
     Dosage: 1 PILL, ONCE DAILY, TAKEN BY MOUTH
     Route: 048

REACTIONS (5)
  - Irritable bowel syndrome [None]
  - Constipation [None]
  - Diarrhoea [None]
  - Abdominal distension [None]
  - Abdominal pain [None]
